APPROVED DRUG PRODUCT: ATENOLOL
Active Ingredient: ATENOLOL
Strength: 50MG
Dosage Form/Route: TABLET;ORAL
Application: A073315 | Product #001
Applicant: TEVA PHARMACEUTICALS USA INC
Approved: May 28, 1993 | RLD: No | RS: No | Type: DISCN